FAERS Safety Report 8893745 (Version 1)
Quarter: 2012Q4

REPORT INFORMATION
  Report Type: 
  Country: US (occurrence: US)
  Receive Date: 20121108
  Receipt Date: 20121108
  Transmission Date: 20130627
  Serious: No
  Sender: FDA-Public Use
  Company Number: US-PFIZER INC-2012274299

PATIENT
  Sex: Female

DRUGS (1)
  1. DEPO-PROVERA [Suspect]
     Dosage: 150 mg, UNK
     Route: 058

REACTIONS (4)
  - Drug dispensing error [Unknown]
  - Incorrect drug dosage form administered [Unknown]
  - Incorrect route of drug administration [Unknown]
  - Injection site bruising [Unknown]
